FAERS Safety Report 19131665 (Version 1)
Quarter: 2021Q2

REPORT INFORMATION
  Report Type: Spontaneous
  Country: US (occurrence: US)
  Receive Date: 20210413
  Receipt Date: 20210413
  Transmission Date: 20210717
  Serious: No
  Sender: FDA-Public Use
  Company Number: US-009507513-2104USA002302

PATIENT
  Age: 0 Day
  Sex: Male

DRUGS (5)
  1. ETRAVIRINE [Suspect]
     Active Substance: ETRAVIRINE
     Dosage: 400 DF, QD
     Route: 064
  2. RITONAVIR. [Suspect]
     Active Substance: RITONAVIR
     Dosage: 200 DF, QD
     Route: 064
  3. EMTRICITABINE (+) TENOFOVIR DISOPROXIL FUMARATE [Suspect]
     Active Substance: EMTRICITABINE\TENOFOVIR DISOPROXIL
     Dosage: 1 DF, QD
     Route: 064
  4. ISENTRESS [Suspect]
     Active Substance: RALTEGRAVIR POTASSIUM
     Dosage: UNK
     Route: 064
  5. DARUNAVIR [Suspect]
     Active Substance: DARUNAVIR
     Dosage: 1200 DF, QD
     Route: 064

REACTIONS (2)
  - Foetal exposure during pregnancy [Recovered/Resolved]
  - Premature baby [Unknown]

NARRATIVE: CASE EVENT DATE: 20080508
